FAERS Safety Report 9459649 (Version 1)
Quarter: 2013Q3

REPORT INFORMATION
  Report Type: Spontaneous
  Country: US (occurrence: US)
  Receive Date: 20130815
  Receipt Date: 20130815
  Transmission Date: 20140515
  Serious: No
  Sender: FDA-Public Use
  Company Number: US-COVIDIEN/TYCO HEALTHCARE/MALLINCKRODT-T201302226

PATIENT
  Age: 54 Year
  Sex: Male
  Weight: 113.38 kg

DRUGS (10)
  1. FENTANYL TRANSDERMAL SYSTEM [Suspect]
     Indication: PAIN IN EXTREMITY
     Dosage: 1 PATCH EVERY 3 DAYS
     Route: 062
     Dates: start: 20130305
  2. FENTANYL TRANSDERMAL SYSTEM [Suspect]
     Indication: ARTHRALGIA
  3. FENTANYL TRANSDERMAL SYSTEM [Suspect]
     Indication: ARTHRALGIA
  4. PERCOCET                           /00446701/ [Concomitant]
     Dosage: 10/325 TABLET
     Route: 048
  5. NEXIUM                             /01479302/ [Concomitant]
     Dosage: UNK
     Route: 048
  6. PREDNISONE [Concomitant]
     Dosage: UNK
     Route: 048
  7. ALLOPURINOL [Concomitant]
     Dosage: UNK
     Route: 048
  8. BYSTOLIC [Concomitant]
     Dosage: UNK
     Route: 048
  9. EXFORGE [Concomitant]
     Dosage: UNK
     Route: 048
  10. KLONOPIN [Concomitant]
     Dosage: UNK
     Route: 048

REACTIONS (6)
  - Restlessness [Not Recovered/Not Resolved]
  - Thinking abnormal [Not Recovered/Not Resolved]
  - Fatigue [Not Recovered/Not Resolved]
  - Insomnia [Not Recovered/Not Resolved]
  - Constipation [Not Recovered/Not Resolved]
  - Drug ineffective [Not Recovered/Not Resolved]
